FAERS Safety Report 4823617-9 (Version None)
Quarter: 2005Q4

REPORT INFORMATION
  Report Type: 
  Country: None (occurrence: None)
  Receive Date: 20051109
  Receipt Date: 20051102
  Transmission Date: 20060501
  Serious: Yes (Death, Hospitalization)
  Sender: FDA-Public Use
  Company Number: US-JNJFOC-20050702877

PATIENT
  Sex: Female
  Weight: 89.36 kg

DRUGS (1)
  1. LEUSTATIN [Suspect]
     Route: 042

REACTIONS (5)
  - EPSTEIN-BARR VIRUS INFECTION [None]
  - HEPATIC FAILURE [None]
  - NON-HODGKIN'S LYMPHOMA [None]
  - PYREXIA [None]
  - SEPTIC SHOCK [None]
